FAERS Safety Report 8510900 (Version 2)
Quarter: 2012Q4

REPORT INFORMATION
  Report Type: 
  Country: US (occurrence: US)
  Receive Date: 20120413
  Receipt Date: 20121116
  Transmission Date: 20130627
  Serious: Yes (Other)
  Sender: FDA-Public Use
  Company Number: US-ENDO PHARMACEUTICALS INC.-OPCR20120057

PATIENT
  Sex: Male
  Weight: 69.92 kg

DRUGS (3)
  1. OPANA ER 30MG [Suspect]
     Indication: PAIN
     Route: 048
     Dates: start: 201203
  2. OXYCODONE HCL 30MG [Concomitant]
     Indication: PAIN
     Route: 048
  3. OPANA ER 30MG [Concomitant]
     Indication: PAIN
     Route: 048
     Dates: start: 2007, end: 201203

REACTIONS (7)
  - Intentional drug misuse [Recovered/Resolved]
  - Vomiting [Recovered/Resolved]
  - Nausea [Recovered/Resolved]
  - Abdominal discomfort [Recovered/Resolved]
  - Constipation [Recovered/Resolved]
  - Weight decreased [Recovered/Resolved]
  - Drug ineffective [Recovered/Resolved]
